FAERS Safety Report 19586592 (Version 3)
Quarter: 2021Q4

REPORT INFORMATION
  Report Type: Spontaneous
  Country: US (occurrence: US)
  Receive Date: 20210721
  Receipt Date: 20211028
  Transmission Date: 20220303
  Serious: Yes (Death)
  Sender: FDA-Public Use
  Company Number: US-KARYOPHARM-2021KPT000872

PATIENT

DRUGS (12)
  1. XPOVIO [Suspect]
     Active Substance: SELINEXOR
     Indication: Plasma cell myeloma
     Dosage: 80 MG, WEEKLY (3 WEEKS ON, 1 WEEK OFF)
     Route: 048
     Dates: start: 20210608, end: 20210701
  2. ACYCLOVIR [Concomitant]
     Active Substance: ACYCLOVIR
  3. ALPRAZOLAM [Concomitant]
     Active Substance: ALPRAZOLAM
  4. ATORVASTATIN CALCIUM [Concomitant]
     Active Substance: ATORVASTATIN CALCIUM
  5. DEXAMETHASONE [Concomitant]
     Active Substance: DEXAMETHASONE
  6. METOPROLOL [Concomitant]
     Active Substance: METOPROLOL
  7. MONTELUKAST SODIUM [Concomitant]
     Active Substance: MONTELUKAST SODIUM
  8. ZOFRAN [Concomitant]
     Active Substance: ONDANSETRON HYDROCHLORIDE
  9. OXYCODONE AND ACETAMINOPHEN [Concomitant]
     Active Substance: ACETAMINOPHEN\OXYCODONE HYDROCHLORIDE
  10. ACETAMINOPHEN [Concomitant]
     Active Substance: ACETAMINOPHEN
  11. FAMOTIDINE [Concomitant]
     Active Substance: FAMOTIDINE
  12. IBUPROFEN [Concomitant]
     Active Substance: IBUPROFEN

REACTIONS (4)
  - Death [Fatal]
  - Stomatitis [Recovering/Resolving]
  - Full blood count decreased [Unknown]
  - Fatigue [Unknown]

NARRATIVE: CASE EVENT DATE: 20210601
